FAERS Safety Report 20410064 (Version 1)
Quarter: 2022Q1

REPORT INFORMATION
  Report Type: Spontaneous
  Country: IN (occurrence: IN)
  Receive Date: 20220201
  Receipt Date: 20220201
  Transmission Date: 20220424
  Serious: Yes (Hospitalization)
  Sender: FDA-Public Use
  Company Number: IN-MYLANLABS-2022M1009623

PATIENT
  Age: 56 Year
  Sex: Male

DRUGS (5)
  1. AMPHOTERICIN B [Suspect]
     Active Substance: AMPHOTERICIN B
     Indication: Antifungal treatment
     Dosage: 50 MILLIGRAM
     Route: 042
  2. AMPHOTERICIN B [Suspect]
     Active Substance: AMPHOTERICIN B
     Indication: Mucormycosis
  3. HEPARIN [Suspect]
     Active Substance: HEPARIN SODIUM
     Indication: Superficial vein thrombosis
     Dosage: 75000 INTERNATIONAL UNIT, BID, PER 0.3ML
     Route: 058
  4. PREGABALIN [Concomitant]
     Active Substance: PREGABALIN
     Indication: Trigeminal neuralgia
     Dosage: 150 MILLIGRAM, QD, ON AND OFF FOR SIX MONTHS
     Route: 065
  5. METFORMIN [Concomitant]
     Active Substance: METFORMIN HYDROCHLORIDE
     Indication: Diabetes mellitus
     Dosage: 500 MILLIGRAM, BID
     Route: 065

REACTIONS (2)
  - Superficial vein thrombosis [Recovering/Resolving]
  - Treatment failure [Unknown]
